FAERS Safety Report 7580288-9 (Version None)
Quarter: 2011Q2

REPORT INFORMATION
  Report Type: 
  Country: None (occurrence: None)
  Receive Date: 20110527
  Receipt Date: 20101018
  Transmission Date: 20111010
  Serious: Yes (Hospitalization, Other)
  Sender: FDA-Public Use
  Company Number: US200812001784

PATIENT
  Age: 58 Year
  Sex: Male
  Weight: 89 kg

DRUGS (8)
  1. HUMULIN 70/30 (INSULIN HUMAN, INSULIN HUMAN INJECTION, ISOPHANE) [Concomitant]
  2. BYETTA [Suspect]
     Dosage: 5 UG, 2/D, SUBCUTANEOUS
     Route: 058
     Dates: start: 20080716, end: 20080901
  3. EXENATIDE 5MCG PEN, DISPOSABLE DEVICE (EXENATIDE PEN (5MCG)) PEN,DISPO [Concomitant]
  4. LISINOPRIL [Concomitant]
  5. DICLOFENAC SODIUM [Concomitant]
  6. RHINOCORT [Concomitant]
  7. NOVOLOG MIX (INSULIN ASPART, INSULIN ASPART PROTAMINE) [Concomitant]
  8. GLUCOPHAGE [Concomitant]

REACTIONS (2)
  - PANCREATITIS [None]
  - OFF LABEL USE [None]
